FAERS Safety Report 9316566 (Version 1)
Quarter: 2013Q2

REPORT INFORMATION
  Report Type: Spontaneous
  Country: US (occurrence: None)
  Receive Date: 20130528
  Receipt Date: 20130528
  Transmission Date: 20140414
  Serious: Yes (Life-Threatening, Hospitalization)
  Sender: FDA-Public Use
  Company Number: None

PATIENT
  Age: 79 Year
  Sex: Female
  Weight: 91.5 kg

DRUGS (1)
  1. VELCADE (BORTEZOMIB) [Suspect]
     Indication: PLASMA CELL MYELOMA
     Route: 042
     Dates: start: 20130412, end: 20130416

REACTIONS (6)
  - Interstitial lung disease [None]
  - Alveolitis allergic [None]
  - Fluid overload [None]
  - Dizziness [None]
  - White blood cell count increased [None]
  - Hypotension [None]
